FAERS Safety Report 18568819 (Version 1)
Quarter: 2020Q4

REPORT INFORMATION
  Report Type: Spontaneous
  Country: US (occurrence: US)
  Receive Date: 20201201
  Receipt Date: 20201201
  Transmission Date: 20210114
  Serious: Yes (Death)
  Sender: FDA-Public Use
  Company Number: None

PATIENT
  Age: 79 Year
  Sex: Female
  Weight: 90.27 kg

DRUGS (21)
  1. SPIRONOLACTONE. [Concomitant]
     Active Substance: SPIRONOLACTONE
  2. PRILOSEC [Concomitant]
     Active Substance: OMEPRAZOLE MAGNESIUM
  3. MAGNESIUM OXIDE. [Concomitant]
     Active Substance: MAGNESIUM OXIDE
  4. VITAMIN D (ERGOCALCIFEROL) [Concomitant]
     Active Substance: ERGOCALCIFEROL
  5. ELIQUIS [Concomitant]
     Active Substance: APIXABAN
  6. TYLENOL [Concomitant]
     Active Substance: ACETAMINOPHEN
  7. ACYCLOVIR. [Concomitant]
     Active Substance: ACYCLOVIR
  8. NINLARO [Suspect]
     Active Substance: IXAZOMIB CITRATE
     Indication: PLASMA CELL MYELOMA
     Dosage: ?          OTHER FREQUENCY:ONCE WEEKLY;?
     Route: 048
     Dates: start: 20201005, end: 20201201
  9. FLORANEX [Concomitant]
     Active Substance: LACTOBACILLUS ACIDOPHILUS\LACTOBACILLUS DELBRUECKII SUBSP. BULGARICUS
  10. PANTOPRAZOLE SODIUM. [Concomitant]
     Active Substance: PANTOPRAZOLE SODIUM
  11. GABAPENTIN. [Concomitant]
     Active Substance: GABAPENTIN
  12. NORCO [Concomitant]
     Active Substance: ACETAMINOPHEN\HYDROCODONE BITARTRATE
  13. ASCORBIC ACID. [Concomitant]
     Active Substance: ASCORBIC ACID
  14. POTASSIUM CHLORIDE ER [Concomitant]
     Active Substance: POTASSIUM CHLORIDE
  15. TIZANIDINE HCL [Concomitant]
     Active Substance: TIZANIDINE HYDROCHLORIDE
  16. METOLAZONE. [Concomitant]
     Active Substance: METOLAZONE
  17. POMALYST 4 MG CAPSULE [Concomitant]
  18. LISINOPRIL. [Concomitant]
     Active Substance: LISINOPRIL
  19. MIRALAX [Concomitant]
     Active Substance: POLYETHYLENE GLYCOL 3350
  20. FERROUS SULFATE. [Concomitant]
     Active Substance: FERROUS SULFATE
  21. DULOXETINE HCL [Concomitant]
     Active Substance: DULOXETINE HYDROCHLORIDE

REACTIONS (1)
  - Death [None]

NARRATIVE: CASE EVENT DATE: 20201201
